FAERS Safety Report 7392260-2 (Version None)
Quarter: 2011Q2

REPORT INFORMATION
  Report Type: 
  Country: None (occurrence: None)
  Receive Date: 20110404
  Receipt Date: 20110331
  Transmission Date: 20111010
  Serious: Yes (Hospitalization, Disabling, Other)
  Sender: FDA-Public Use
  Company Number: US-MERCK-1010USA01925

PATIENT
  Age: 56 Year
  Sex: Female
  Weight: 64 kg

DRUGS (3)
  1. FOSAMAX [Suspect]
     Indication: BONE DISORDER
     Route: 048
     Dates: start: 20011005, end: 20071226
  2. ALENDRONATE SODIUM [Suspect]
     Indication: OSTEOPOROSIS
     Route: 048
     Dates: start: 20080304, end: 20100520
  3. FOSAMAX [Suspect]
     Indication: OSTEOPOROSIS
     Route: 048
     Dates: start: 20011005, end: 20071226

REACTIONS (63)
  - BONE DENSITY DECREASED [None]
  - ARTHRALGIA [None]
  - HIATUS HERNIA [None]
  - DRUG HYPERSENSITIVITY [None]
  - RENAL CYST [None]
  - PHLEBITIS [None]
  - PAIN IN EXTREMITY [None]
  - DRUG INEFFECTIVE [None]
  - DEPRESSION [None]
  - CARPAL TUNNEL SYNDROME [None]
  - CAROTID ARTERY STENOSIS [None]
  - BUNION [None]
  - BLADDER SPASM [None]
  - BILIARY COLIC [None]
  - CEREBROVASCULAR ACCIDENT [None]
  - URINARY TRACT INFECTION [None]
  - DEAFNESS [None]
  - MULTIPLE FRACTURES [None]
  - RASH [None]
  - GAIT DISTURBANCE [None]
  - FIBROMUSCULAR DYSPLASIA [None]
  - GASTROOESOPHAGEAL REFLUX DISEASE [None]
  - HYPERLIPIDAEMIA [None]
  - INTERVERTEBRAL DISC DISORDER [None]
  - SCOLIOSIS [None]
  - SACROILIITIS [None]
  - VARICOSE VEIN [None]
  - JOINT SWELLING [None]
  - ADVERSE DRUG REACTION [None]
  - CAROTID ARTERY DISEASE [None]
  - COORDINATION ABNORMAL [None]
  - JOINT RANGE OF MOTION DECREASED [None]
  - INSOMNIA [None]
  - EAR PAIN [None]
  - DYSLIPIDAEMIA [None]
  - SYNOVIAL CYST [None]
  - BONE METABOLISM DISORDER [None]
  - ACETABULUM FRACTURE [None]
  - DEVICE FAILURE [None]
  - GALLBLADDER DISORDER [None]
  - INTERVERTEBRAL DISC PROTRUSION [None]
  - PYURIA [None]
  - CYSTITIS ESCHERICHIA [None]
  - FEMUR FRACTURE [None]
  - OSTEOARTHRITIS [None]
  - VIITH NERVE PARALYSIS [None]
  - SCIATICA [None]
  - OSTEOMALACIA [None]
  - MUSCULAR WEAKNESS [None]
  - MICTURITION URGENCY [None]
  - JOINT DISLOCATION [None]
  - MUSCLE CONTRACTURE [None]
  - URINARY INCONTINENCE [None]
  - SPINAL DISORDER [None]
  - FALL [None]
  - PARKINSON'S DISEASE [None]
  - HIP FRACTURE [None]
  - ABDOMINAL PAIN LOWER [None]
  - HEPATIC CYST [None]
  - STRESS FRACTURE [None]
  - ASTHENIA [None]
  - CONTUSION [None]
  - FATIGUE [None]
